FAERS Safety Report 21302068 (Version 1)
Quarter: 2022Q3

REPORT INFORMATION
  Report Type: Spontaneous
  Country: NL (occurrence: NL)
  Receive Date: 20220907
  Receipt Date: 20220907
  Transmission Date: 20221027
  Serious: Yes (Hospitalization, Other)
  Sender: FDA-Public Use
  Company Number: NL-NOVARTISPH-NVSC2022NL199037

PATIENT
  Age: 61 Year
  Sex: Female
  Weight: 64 kg

DRUGS (55)
  1. DEXAMETHASONE [Suspect]
     Active Substance: DEXAMETHASONE
     Indication: Mantle cell lymphoma
     Dosage: UNK (40)
     Route: 065
     Dates: start: 20220706, end: 20220711
  2. FLUDARABINE [Suspect]
     Active Substance: FLUDARABINE PHOSPHATE
     Indication: Bone marrow conditioning regimen
     Dosage: UNK (50)
     Route: 065
     Dates: start: 20220804, end: 20220804
  3. FLUDARABINE [Suspect]
     Active Substance: FLUDARABINE PHOSPHATE
     Dosage: UNK (50)
     Route: 065
     Dates: start: 20220805, end: 20220805
  4. FLUDARABINE [Suspect]
     Active Substance: FLUDARABINE PHOSPHATE
     Dosage: UNK (50)
     Route: 065
     Dates: start: 20220806, end: 20220806
  5. CYCLOPHOSPHAMIDE [Suspect]
     Active Substance: CYCLOPHOSPHAMIDE
     Indication: Bone marrow conditioning regimen
     Dosage: UNK (840)
     Route: 065
     Dates: start: 20220804, end: 20220804
  6. CYCLOPHOSPHAMIDE [Suspect]
     Active Substance: CYCLOPHOSPHAMIDE
     Dosage: UNK (840)
     Route: 065
     Dates: start: 20220805, end: 20220805
  7. CYCLOPHOSPHAMIDE [Suspect]
     Active Substance: CYCLOPHOSPHAMIDE
     Dosage: UNK (840)
     Route: 065
     Dates: start: 20220806, end: 20220806
  8. MESNA [Suspect]
     Active Substance: MESNA
     Indication: Prophylaxis
     Dosage: UNK (400 ADMINISTERED TWICE)
     Route: 065
     Dates: start: 20220804, end: 20220804
  9. MESNA [Suspect]
     Active Substance: MESNA
     Dosage: UNK (400 ADMINISTERED TWICE)
     Route: 065
     Dates: start: 20220805, end: 20220805
  10. MESNA [Suspect]
     Active Substance: MESNA
     Dosage: UNK (400 ADMINISTERED TWICE)
     Route: 065
     Dates: start: 20220806, end: 20220806
  11. MESNA [Suspect]
     Active Substance: MESNA
     Dosage: UNK (400)
     Route: 065
     Dates: start: 20220807, end: 20220807
  12. PANTOPRAZOLE SODIUM [Concomitant]
     Active Substance: PANTOPRAZOLE SODIUM
     Indication: Product used for unknown indication
     Dosage: 40 MG, QD
     Route: 048
     Dates: start: 20220817
  13. AMOXICILLIN [Concomitant]
     Active Substance: AMOXICILLIN
     Indication: Product used for unknown indication
     Dosage: 1 DOSAGE FORM, TID
     Route: 048
     Dates: start: 20220621, end: 20220712
  14. AMOXICILLIN [Concomitant]
     Active Substance: AMOXICILLIN
     Dosage: 75 MG, TID
     Route: 048
     Dates: start: 20220713, end: 20220718
  15. AMOXICILLIN [Concomitant]
     Active Substance: AMOXICILLIN
     Dosage: 1 DOSAGE FORM, TID
     Route: 048
     Dates: start: 20220621
  16. AMOXICILLIN [Concomitant]
     Active Substance: AMOXICILLIN
     Dosage: 100 MG, TID
     Route: 048
     Dates: start: 20220622, end: 20220629
  17. GENTAMICIN [Concomitant]
     Active Substance: GENTAMICIN
     Indication: Product used for unknown indication
     Dosage: 440 MG (OTHER)
     Route: 042
     Dates: start: 20220811, end: 20220815
  18. ALFENTANIL [Concomitant]
     Active Substance: ALFENTANIL
     Indication: Product used for unknown indication
     Dosage: 250 UG, ONCE/SINGLE
     Route: 042
     Dates: start: 20220705, end: 20220705
  19. CEFTRIAXONE [Concomitant]
     Active Substance: CEFTRIAXONE
     Indication: Product used for unknown indication
     Dosage: 2000 MG, QD
     Route: 042
     Dates: start: 20220811, end: 20220815
  20. TOCILIZUMAB [Concomitant]
     Active Substance: TOCILIZUMAB
     Indication: Product used for unknown indication
     Dosage: 492.8 MG, ONCE/SINGLE
     Route: 042
     Dates: start: 20220811, end: 20220812
  21. TOCILIZUMAB [Concomitant]
     Active Substance: TOCILIZUMAB
     Dosage: 506.4 MG (X3)
     Route: 042
     Dates: start: 20220814, end: 20220814
  22. POLYETHYLENE GLYCOLS [Concomitant]
     Active Substance: POLYETHYLENE GLYCOLS
     Indication: Product used for unknown indication
     Dosage: 1 DOSAGE FORM, QD (OTHER)
     Route: 048
     Dates: start: 20220627, end: 20220725
  23. POLYETHYLENE GLYCOLS [Concomitant]
     Active Substance: POLYETHYLENE GLYCOLS
     Dosage: 1 DOSAGE FORM (OTHER)
     Route: 048
     Dates: start: 20220627
  24. POLYETHYLENE GLYCOLS [Concomitant]
     Active Substance: POLYETHYLENE GLYCOLS
     Dosage: 1 DOSAGE FORM, BID (OTHER)
     Route: 048
     Dates: start: 20220725
  25. INSULIN ASPART [Concomitant]
     Active Substance: INSULIN ASPART
     Indication: Product used for unknown indication
     Dosage: UNK UNK, QID (2-6 IU)
     Route: 058
     Dates: start: 20220812
  26. CLEMASTINE [Concomitant]
     Active Substance: CLEMASTINE
     Indication: Product used for unknown indication
     Dosage: 2 MG, ONCE/SINGLE
     Route: 042
     Dates: start: 20220809, end: 20220809
  27. ESKETAMINE [Concomitant]
     Active Substance: ESKETAMINE
     Indication: Product used for unknown indication
     Dosage: 10 MG, ONCE/SINGLE
     Route: 042
     Dates: start: 20220705, end: 20220705
  28. LIDOCAINE [Concomitant]
     Active Substance: LIDOCAINE
     Indication: Product used for unknown indication
     Dosage: 50 MG, ONCE/SINGLE
     Route: 042
     Dates: start: 20220705, end: 20220705
  29. LIDOCAINE [Concomitant]
     Active Substance: LIDOCAINE
     Dosage: 10 ML, ONCE/SINGLE
     Route: 058
     Dates: start: 20220804, end: 20220804
  30. ACETAMINOPHEN [Concomitant]
     Active Substance: ACETAMINOPHEN
     Indication: Product used for unknown indication
     Dosage: 1000 MG, TID
     Route: 054
     Dates: start: 2022, end: 20220718
  31. ACETAMINOPHEN [Concomitant]
     Active Substance: ACETAMINOPHEN
     Dosage: 1000 MG, TID
     Route: 048
     Dates: start: 20220719
  32. ACETAMINOPHEN [Concomitant]
     Active Substance: ACETAMINOPHEN
     Dosage: 1000 MG, TID
     Route: 054
     Dates: start: 2022
  33. NADROPARIN [Concomitant]
     Active Substance: NADROPARIN
     Indication: Product used for unknown indication
     Dosage: 2850 IU, QD
     Route: 058
     Dates: start: 20220719
  34. NADROPARIN [Concomitant]
     Active Substance: NADROPARIN
     Dosage: 2850 IU, QD
     Route: 058
     Dates: start: 20220719, end: 20220724
  35. NADROPARIN [Concomitant]
     Active Substance: NADROPARIN
     Dosage: 2850 IU, QD
     Route: 058
     Dates: start: 20220815
  36. METOCLOPRAMIDE [Concomitant]
     Active Substance: METOCLOPRAMIDE
     Indication: Product used for unknown indication
     Dosage: 10 MG, TID
     Route: 048
     Dates: start: 20220804
  37. FENTANYL [Concomitant]
     Active Substance: FENTANYL
     Indication: Product used for unknown indication
     Dosage: 100 UG, BID
     Route: 050
     Dates: start: 20220722
  38. FENTANYL [Concomitant]
     Active Substance: FENTANYL
     Dosage: 100 UG, BID
     Route: 050
     Dates: start: 20220722, end: 20220803
  39. VALACYCLOVIR HYDROCHLORIDE [Concomitant]
     Active Substance: VALACYCLOVIR HYDROCHLORIDE
     Indication: Product used for unknown indication
     Dosage: 500 MG, BID
     Route: 048
     Dates: start: 20220719
  40. POTASSIUM CHLORIDE [Concomitant]
     Active Substance: POTASSIUM CHLORIDE
     Indication: Product used for unknown indication
     Dosage: UNK, BID (30 OTHER)
     Route: 048
     Dates: start: 20220722, end: 20220724
  41. PROPOFOL [Concomitant]
     Active Substance: PROPOFOL
     Indication: Product used for unknown indication
     Dosage: UNK, ONCE/SINGLE (5669 OTHER)
     Route: 042
     Dates: start: 20220705, end: 20220705
  42. SODIUM CHLORIDE [Concomitant]
     Active Substance: SODIUM CHLORIDE
     Indication: Product used for unknown indication
     Dosage: 250 ML, QD
     Route: 058
     Dates: start: 20220719, end: 20220719
  43. DOTAREM [Concomitant]
     Active Substance: GADOTERATE MEGLUMINE
     Indication: Product used for unknown indication
     Dosage: 12 ML, ONCE/SINGLE
     Route: 042
     Dates: start: 20220705, end: 20220705
  44. DOTAREM [Concomitant]
     Active Substance: GADOTERATE MEGLUMINE
     Dosage: 12 ML, ONCE/SINGLE
     Route: 042
     Dates: start: 20220815, end: 20220815
  45. OXYCODONE [Concomitant]
     Active Substance: OXYCODONE
     Indication: Product used for unknown indication
     Dosage: 5 MG, BID
     Route: 048
     Dates: start: 20220627, end: 20220718
  46. OXYCODONE [Concomitant]
     Active Substance: OXYCODONE
     Dosage: 5 MG, BID
     Route: 048
     Dates: start: 20220627
  47. OXYCODONE [Concomitant]
     Active Substance: OXYCODONE
     Dosage: 10 MG, BID
     Route: 048
     Dates: start: 20220722, end: 20220725
  48. OXYCODONE [Concomitant]
     Active Substance: OXYCODONE
     Dosage: 5 MG, BID
     Route: 048
     Dates: start: 20220725, end: 20220804
  49. SALIVA [Concomitant]
     Indication: Product used for unknown indication
     Dosage: UNK (OTHER)
     Route: 050
     Dates: start: 20220722, end: 20220816
  50. LEVOFLOXACIN [Concomitant]
     Active Substance: LEVOFLOXACIN
     Indication: Product used for unknown indication
     Dosage: 500 MG, QD
     Route: 048
     Dates: start: 20220715, end: 20220722
  51. LEVOFLOXACIN [Concomitant]
     Active Substance: LEVOFLOXACIN
     Dosage: 500 MG, QD
     Route: 048
     Dates: start: 20220715
  52. SULFAMETHOXAZOLE\TRIMETHOPRIM [Concomitant]
     Active Substance: SULFAMETHOXAZOLE\TRIMETHOPRIM
     Indication: Product used for unknown indication
     Dosage: 480 MG, QD
     Route: 048
     Dates: start: 20220723
  53. DEXAMETHASONE [Concomitant]
     Active Substance: DEXAMETHASONE
     Indication: Product used for unknown indication
     Dosage: 4 MG, BID
     Route: 048
     Dates: start: 20220722
  54. ONDANSETRON [Concomitant]
     Active Substance: ONDANSETRON
     Indication: Product used for unknown indication
     Dosage: 8 MG, BID
     Route: 048
     Dates: start: 20220804
  55. ONDANSETRON [Concomitant]
     Active Substance: ONDANSETRON
     Dosage: 8 MG, BID
     Route: 048
     Dates: start: 20220804, end: 20220816

REACTIONS (2)
  - Wound infection [Recovered/Resolved]
  - Immune effector cell-associated neurotoxicity syndrome [Recovered/Resolved]

NARRATIVE: CASE EVENT DATE: 20220815
